FAERS Safety Report 8200430-6 (Version None)
Quarter: 2012Q1

REPORT INFORMATION
  Report Type: 
  Country: None (occurrence: None)
  Receive Date: 20120312
  Receipt Date: 20120301
  Transmission Date: 20120608
  Serious: Yes (Other)
  Sender: FDA-Public Use
  Company Number: US-RB-035649-12

PATIENT
  Age: 61 Year
  Sex: Female

DRUGS (2)
  1. MUCINEX DM [Suspect]
     Indication: COUGH
     Route: 048
     Dates: start: 20120225
  2. NOVALOX [Concomitant]
     Indication: MALAISE

REACTIONS (1)
  - HAEMOPTYSIS [None]
